FAERS Safety Report 5444717-9 (Version None)
Quarter: 2007Q3

REPORT INFORMATION
  Report Type: 
  Country: None (occurrence: None)
  Receive Date: 20070906
  Receipt Date: 20070226
  Transmission Date: 20080115
  Serious: No
  Sender: FDA-Public Use
  Company Number: A0640042A

PATIENT
  Age: 66 Year
  Sex: Female

DRUGS (10)
  1. REQUIP [Suspect]
     Indication: RESTLESS LEGS SYNDROME
     Dosage: .25MG PER DAY
     Route: 048
     Dates: start: 20070214
  2. TOPAMAX [Concomitant]
  3. PERCOCET [Concomitant]
  4. CARDIZEM [Concomitant]
  5. HYTRIN [Concomitant]
  6. LEVOXYL [Concomitant]
  7. IMDUR [Concomitant]
  8. GLUCOPHAGE [Concomitant]
  9. ACTOS [Concomitant]
  10. LIPITOR [Concomitant]

REACTIONS (1)
  - HYPERSOMNIA [None]
